FAERS Safety Report 7359037-5 (Version None)
Quarter: 2011Q1

REPORT INFORMATION
  Report Type: 
  Country: None (occurrence: None)
  Receive Date: 20110317
  Receipt Date: 20110315
  Transmission Date: 20110831
  Serious: Yes (Other)
  Sender: FDA-Public Use
  Company Number: US-PFIZER INC-2011057269

PATIENT
  Sex: Female
  Weight: 68.027 kg

DRUGS (14)
  1. PAROXETINE [Concomitant]
     Dosage: 25 MG, UNK
     Route: 048
  2. MULTI-VITAMINS [Concomitant]
     Dosage: UNK
  3. DIAZEPAM [Concomitant]
     Indication: STRESS
  4. LYRICA [Suspect]
     Dosage: 100 MG, 2X/DAY
  5. NORTRIPTYLINE [Concomitant]
     Indication: DEPRESSION
  6. DIAZEPAM [Concomitant]
     Indication: HEADACHE
     Dosage: 5 MG, UNK
     Route: 048
  7. VITAMIN D [Concomitant]
     Indication: THYROID DISORDER
     Dosage: 2000 MG, UNK
     Route: 048
  8. ALEVE [Concomitant]
     Indication: GASTROOESOPHAGEAL REFLUX DISEASE
     Dosage: UNK
     Route: 048
  9. NORTRIPTYLINE [Concomitant]
     Indication: MIGRAINE
     Dosage: 25 MG, 1X/DAY
     Route: 048
  10. ATROPINE W/DIPHENOXYLATE [Concomitant]
     Dosage: UNK
     Route: 048
  11. TYLENOL-500 [Concomitant]
     Indication: GASTROOESOPHAGEAL REFLUX DISEASE
     Dosage: UNK
     Route: 048
  12. LEVOTHYROXINE [Concomitant]
     Indication: THYROID DISORDER
     Dosage: 0.075 UG, UNK
     Route: 048
  13. LYRICA [Suspect]
     Indication: FIBROMYALGIA
     Dosage: 75 MG, 1X/DAY
     Route: 048
  14. LYRICA [Suspect]
     Dosage: 150 MG, 2X/DAY

REACTIONS (1)
  - PANCREATIC DISORDER [None]
